FAERS Safety Report 6993178-7 (Version None)
Quarter: 2010Q3

REPORT INFORMATION
  Report Type: 
  Country: None (occurrence: None)
  Receive Date: 20100917
  Receipt Date: 20100111
  Transmission Date: 20110219
  Serious: Yes (Other)
  Sender: FDA-Public Use
  Company Number: US-ASTRAZENECA-2009SE16079

PATIENT
  Age: 27 Year
  Sex: Male
  Weight: 117 kg

DRUGS (8)
  1. SEROQUEL [Suspect]
     Indication: SLEEP DISORDER
     Dosage: 75-200 MG
     Route: 048
     Dates: start: 20030101, end: 20051201
  2. ABILIFY [Concomitant]
     Dates: start: 20050101, end: 20080101
  3. LEXAPRO [Concomitant]
     Dates: start: 20030101
  4. PAXIL [Concomitant]
     Dates: start: 20030101, end: 20090101
  5. EFFEXOR [Concomitant]
     Dates: start: 20030101, end: 20040101
  6. KLONOPIN [Concomitant]
     Dates: start: 20050101, end: 20090101
  7. ATARAX [Concomitant]
     Dates: start: 20050101, end: 20090101
  8. COGENTIN [Concomitant]
     Dates: start: 20070101, end: 20090101

REACTIONS (5)
  - DISTURBANCE IN ATTENTION [None]
  - HOMICIDAL IDEATION [None]
  - SUICIDAL IDEATION [None]
  - TYPE 2 DIABETES MELLITUS [None]
  - VIOLENCE-RELATED SYMPTOM [None]
